FAERS Safety Report 23963729 (Version 2)
Quarter: 2024Q3

REPORT INFORMATION
  Report Type: Report from Study
  Country: US (occurrence: US)
  Receive Date: 20240611
  Receipt Date: 20240801
  Transmission Date: 20241017
  Serious: No
  Sender: APELLIS PHARMACEUTICALS
  Company Number: US-APELLIS-2024-APL-0000101

PATIENT

DRUGS (1)
  1. PEGCETACOPLAN [Suspect]
     Active Substance: PEGCETACOPLAN
     Indication: Paroxysmal nocturnal haemoglobinuria
     Dosage: 1080MG, SUBCUTANEOUS, 2 TIMES PER WEEK
     Route: 058
     Dates: start: 20230719

REACTIONS (4)
  - Pain [Unknown]
  - Haemoglobin abnormal [Unknown]
  - Oropharyngeal pain [Unknown]
  - Cough [Unknown]

NARRATIVE: CASE EVENT DATE: 20240501
